FAERS Safety Report 11374454 (Version 1)
Quarter: 2015Q3

REPORT INFORMATION
  Report Type: Other
  Country: GB (occurrence: GB)
  Receive Date: 20150813
  Receipt Date: 20150813
  Transmission Date: 20151125
  Serious: Yes (Other)
  Sender: FDA-Public Use
  Company Number: GB-MACLEODS PHARMACEUTICALS US LTD-MAC2015001910

PATIENT

DRUGS (3)
  1. CANDESARTAN [Suspect]
     Active Substance: CANDESARTAN
     Indication: ESSENTIAL HYPERTENSION
     Dosage: 8 MG, QD
     Route: 048
     Dates: start: 20150722, end: 20150723
  2. IRBESARTAN FILM COATED 150MG TABLET [Suspect]
     Active Substance: IRBESARTAN
     Indication: ESSENTIAL HYPERTENSION
     Dosage: 150 MG, QD
     Route: 048
     Dates: start: 20140613, end: 20150721
  3. EVOREL CONTAN [Concomitant]
     Indication: PRODUCT USED FOR UNKNOWN INDICATION
     Dosage: UNK
     Route: 065

REACTIONS (3)
  - Lichen planus [Recovering/Resolving]
  - Oral mucosal blistering [Recovered/Resolved]
  - Oral lichen planus [Unknown]

NARRATIVE: CASE EVENT DATE: 20140730
